FAERS Safety Report 12850787 (Version 1)
Quarter: 2016Q4

REPORT INFORMATION
  Report Type: Spontaneous
  Country: US (occurrence: US)
  Receive Date: 20161014
  Receipt Date: 20161014
  Transmission Date: 20170207
  Serious: No
  Sender: FDA-Public Use
  Company Number: US-ALLERGAN-1520705US

PATIENT
  Age: 70 Year
  Sex: Female

DRUGS (1)
  1. AZELEX [Suspect]
     Active Substance: AZELAIC ACID
     Indication: ROSACEA
     Dosage: SMALLER THAN A PEARL SIZED AMOUNT
     Route: 061
     Dates: start: 2015, end: 20150930

REACTIONS (5)
  - Flatulence [Recovered/Resolved]
  - Abdominal distension [Recovered/Resolved]
  - Pruritus [Recovered/Resolved]
  - Constipation [Recovered/Resolved]
  - Fatigue [Recovered/Resolved]

NARRATIVE: CASE EVENT DATE: 201509
